FAERS Safety Report 20564643 (Version 2)
Quarter: 2022Q1

REPORT INFORMATION
  Report Type: Spontaneous
  Country: NL (occurrence: NL)
  Receive Date: 20220308
  Receipt Date: 20220331
  Transmission Date: 20220423
  Serious: Yes (Other)
  Sender: FDA-Public Use
  Company Number: None

PATIENT
  Age: 49 Year
  Sex: Male
  Weight: 88 kg

DRUGS (2)
  1. DEXAMETHASONE [Suspect]
     Active Substance: DEXAMETHASONE
     Indication: COVID-19 pneumonia
     Dosage: 6 MILLIGRAM DAILY; 1X PER DAY 6 MG,DEXAMETHASON / BRAND NAME NOT SPECIFIED,THERAPY END DATE :ASKU
     Route: 065
     Dates: start: 20220131
  2. WHITE CROSS PARACETAMOL [Concomitant]
     Dosage: 4000 MILLIGRAM DAILY; 2X500MG, 4X PER 24 HOURS,PARACETAMOL GRANULATE 500MG / WHITE CROSS PARACETAMOL

REACTIONS (4)
  - Discomfort [Not Recovered/Not Resolved]
  - Confusional state [Not Recovered/Not Resolved]
  - Feeling abnormal [Not Recovered/Not Resolved]
  - Withdrawal syndrome [Not Recovered/Not Resolved]

NARRATIVE: CASE EVENT DATE: 20220202
